FAERS Safety Report 6914161-3 (Version None)
Quarter: 2010Q3

REPORT INFORMATION
  Report Type: 
  Country: None (occurrence: None)
  Receive Date: 20100804
  Receipt Date: 20100804
  Transmission Date: 20110219
  Serious: Yes (Other)
  Sender: FDA-Public Use
  Company Number: None

PATIENT
  Age: 75 Year
  Sex: Female
  Weight: 73.0291 kg

DRUGS (2)
  1. PANTOPRAZOLE [Suspect]
     Indication: GASTROOESOPHAGEAL REFLUX DISEASE
     Dosage: 1 1 DAILY ORAL
     Route: 048
     Dates: start: 20091003, end: 20100419
  2. PANTOPRAZOLE [Suspect]
     Indication: HIATUS HERNIA
     Dosage: 1 1 DAILY ORAL
     Route: 048
     Dates: start: 20091003, end: 20100419

REACTIONS (3)
  - ABDOMINAL PAIN UPPER [None]
  - ALOPECIA [None]
  - PRURITUS [None]
